FAERS Safety Report 4436126-6 (Version None)
Quarter: 2004Q3

REPORT INFORMATION
  Report Type: 
  Country: None (occurrence: None)
  Receive Date: 20040728
  Receipt Date: 20040405
  Transmission Date: 20050211
  Serious: Yes (Hospitalization)
  Sender: FDA-Public Use
  Company Number: 205879

PATIENT
  Age: 60 Year
  Sex: Male
  Weight: 77.2 kg

DRUGS (8)
  1. RITUXAN [Suspect]
     Indication: MANTLE CELL LYMPHOMA
     Dosage: 1/WEEK, INTRAVENOUS
     Route: 042
  2. RITUXAN [Suspect]
     Dosage: 250 MG/M2,SINGLE, INTRAVENOUS
     Route: 042
     Dates: start: 20021107, end: 20021107
  3. RITUXAN [Suspect]
     Dosage: 250 MG/M2, SINGLE, INTRAVENOUS
     Route: 042
     Dates: start: 20021114, end: 20021114
  4. RITUXAN [Suspect]
     Dosage: INTRAVENOUS
     Route: 042
     Dates: start: 20031217
  5. FLUDARABINE PHOSPHATE [Suspect]
     Indication: MANTLE CELL LYMPHOMA
     Dosage: 5 MCI, SINGLE, INTRAVENOUS
     Route: 042
     Dates: start: 20021114, end: 20021114
  6. ZEVALIN [Suspect]
     Indication: MANTLE CELL LYMPHOMA
     Dosage: 5 MCI, SINGLE, INTRAVENOUS
     Route: 042
     Dates: start: 20021107, end: 20021107
  7. ZEVALIN [Suspect]
     Dosage: 5 MCI, SINGLE, INTRAVENOUS
     Route: 042
     Dates: start: 20021114, end: 20021114
  8. ZEVALIN [Suspect]
     Indication: MANTLE CELL LYMPHOMA
     Dosage: 30.9 MCI, SINGLE, INTRAVENOUS
     Route: 042
     Dates: start: 20021114, end: 20021114

REACTIONS (1)
  - TUMOUR LYSIS SYNDROME [None]
